FAERS Safety Report 19669072 (Version 2)
Quarter: 2022Q2

REPORT INFORMATION
  Report Type: Spontaneous
  Country: US (occurrence: US)
  Receive Date: 20210806
  Receipt Date: 20220606
  Transmission Date: 20220721
  Serious: Yes (Other)
  Sender: FDA-Public Use
  Company Number: US-UPSHER-SMITH LABORATORIES, LLC-2021USL00501

PATIENT
  Sex: Male
  Weight: 104.31 kg

DRUGS (18)
  1. AMIODARONE HYDROCHLORIDE [Suspect]
     Active Substance: AMIODARONE HYDROCHLORIDE
     Indication: Lung disorder
     Dosage: 200 MG, 1X/DAY
     Dates: start: 200201, end: 2021
  2. AMIODARONE HYDROCHLORIDE [Suspect]
     Active Substance: AMIODARONE HYDROCHLORIDE
     Indication: Dyspnoea
     Dosage: 200 MG, 1X/DAY
     Dates: start: 202102, end: 202107
  3. METOPROLOL [Suspect]
     Active Substance: METOPROLOL
     Dosage: 50 MG, 1X/DAY
  4. METOPROLOL [Suspect]
     Active Substance: METOPROLOL
     Dosage: 100 MG, 1X/DAY
  5. UNSPECIFIED INGREDIENT [Suspect]
     Active Substance: UNSPECIFIED INGREDIENT
  6. FINASTERIDE [Concomitant]
     Active Substance: FINASTERIDE
     Dosage: UNK
     Dates: start: 202101
  7. VITAMIN D [Concomitant]
     Active Substance: VITAMIN D NOS
  8. ZINC [Concomitant]
     Active Substance: ZINC
  9. VITAMIN C [Concomitant]
     Active Substance: ASCORBIC ACID
  10. VITAMIN B COMPLEX [Concomitant]
     Active Substance: CYANOCOBALAMIN\DEXPANTHENOL\NIACINAMIDE\PYRIDOXINE HYDROCHLORIDE\RIBOFLAVIN 5^-PHOSPHATE SODIUM\THIA
  11. POTASSIUM [Concomitant]
     Active Substance: POTASSIUM
     Dosage: A LOT
  12. TAMSULOSIN [Concomitant]
     Active Substance: TAMSULOSIN
  13. GLIPIZIDE [Concomitant]
     Active Substance: GLIPIZIDE
  14. METFORMIN [Concomitant]
     Active Substance: METFORMIN HYDROCHLORIDE
  15. GLUCOSAMINE [Concomitant]
     Active Substance: GLUCOSAMINE
     Dosage: A LOT
  16. ELIQUIS [Concomitant]
     Active Substance: APIXABAN
  17. LASIX [Concomitant]
     Active Substance: FUROSEMIDE
     Dosage: 60 UNK, 2X/DAY
  18. CARBIDOPA\LEVODOPA [Concomitant]
     Active Substance: CARBIDOPA\LEVODOPA

REACTIONS (9)
  - Dyspnoea [Not Recovered/Not Resolved]
  - Pneumonia [Unknown]
  - Chest discomfort [Not Recovered/Not Resolved]
  - Abdominal pain lower [Not Recovered/Not Resolved]
  - Product dose omission issue [Recovered/Resolved]
  - Insomnia [Unknown]
  - Dizziness [Unknown]
  - Nausea [Not Recovered/Not Resolved]
  - Fatigue [Recovered/Resolved]

NARRATIVE: CASE EVENT DATE: 20210101
